FAERS Safety Report 6683942-6 (Version None)
Quarter: 2010Q2

REPORT INFORMATION
  Report Type: 
  Country: None (occurrence: None)
  Receive Date: 20100416
  Receipt Date: 20100407
  Transmission Date: 20101027
  Serious: Yes (Other)
  Sender: FDA-Public Use
  Company Number: JP-PFIZER INC-2010044857

PATIENT

DRUGS (2)
  1. AROMASIN [Suspect]
     Dosage: UNK
     Route: 048
  2. URSO 250 [Concomitant]
     Dosage: UNK
     Route: 048

REACTIONS (1)
  - MOUTH HAEMORRHAGE [None]
